FAERS Safety Report 13165542 (Version 1)
Quarter: 2017Q1

REPORT INFORMATION
  Report Type: Spontaneous
  Country: US (occurrence: US)
  Receive Date: 20170131
  Receipt Date: 20170131
  Transmission Date: 20170428
  Serious: Yes (Other)
  Sender: FDA-Public Use
  Company Number: US-UCBSA-2017003260

PATIENT
  Age: 66 Year
  Sex: Male

DRUGS (3)
  1. KEPPRA [Suspect]
     Active Substance: LEVETIRACETAM
     Indication: PRODUCT USED FOR UNKNOWN INDICATION
     Dosage: 500 MG, 2X/DAY (BID)
  2. KEPPRA [Suspect]
     Active Substance: LEVETIRACETAM
     Dosage: 1500 MG, 2X/DAY (BID)
  3. KEPPRA [Suspect]
     Active Substance: LEVETIRACETAM
     Dosage: 1000 MG, 2X/DAY (BID)

REACTIONS (4)
  - Cognitive disorder [Recovering/Resolving]
  - Subdural haematoma [Recovering/Resolving]
  - Encephalopathy [Recovering/Resolving]
  - Unresponsive to stimuli [Recovering/Resolving]
